FAERS Safety Report 8567605-8 (Version None)
Quarter: 2012Q3

REPORT INFORMATION
  Report Type: 
  Country: None (occurrence: None)
  Receive Date: 20120803
  Receipt Date: 20120731
  Transmission Date: 20120928
  Serious: Yes (Death, Life-Threatening, Hospitalization)
  Sender: FDA-Public Use
  Company Number: US-ACTELION-A-NJ2012-64714

PATIENT
  Age: 8 Year
  Sex: Male

DRUGS (2)
  1. TRACLEER [Suspect]
     Indication: PULMONARY ARTERIAL HYPERTENSION
     Dosage: UNK
     Route: 048
     Dates: end: 20120611
  2. SILDENAFIL [Concomitant]

REACTIONS (4)
  - WITHDRAWAL OF LIFE SUPPORT [None]
  - DYSPNOEA [None]
  - PULMONARY HYPERTENSION [None]
  - LUNG DISORDER [None]
